FAERS Safety Report 20330247 (Version 1)
Quarter: 2022Q1

REPORT INFORMATION
  Report Type: Report from Study
  Country: CA (occurrence: CA)
  Receive Date: 20220113
  Receipt Date: 20220113
  Transmission Date: 20220423
  Serious: Yes (Hospitalization, Other)
  Sender: FDA-Public Use
  Company Number: CA-ABBVIE-22K-028-4230161-00

PATIENT
  Age: 61 Year
  Sex: Female

DRUGS (1)
  1. RINVOQ [Suspect]
     Active Substance: UPADACITINIB
     Indication: Rheumatoid arthritis
     Route: 048
     Dates: start: 20200728, end: 20220104

REACTIONS (7)
  - Cerebrovascular accident [Unknown]
  - Cerebral thrombosis [Unknown]
  - Abnormal sensation in eye [Unknown]
  - Joint range of motion decreased [Unknown]
  - Blood pressure decreased [Unknown]
  - Transient ischaemic attack [Unknown]
  - Heart rate irregular [Recovered/Resolved]

NARRATIVE: CASE EVENT DATE: 20210101
